FAERS Safety Report 7389002-3 (Version None)
Quarter: 2011Q1

REPORT INFORMATION
  Report Type: 
  Country: None (occurrence: None)
  Receive Date: 20110329
  Receipt Date: 20110329
  Transmission Date: 20110831
  Serious: No
  Sender: FDA-Public Use
  Company Number: None

PATIENT
  Sex: Female
  Weight: 71.2147 kg

DRUGS (2)
  1. OMEPRAZOLE [Suspect]
     Indication: GASTROOESOPHAGEAL REFLUX DISEASE
     Dosage: APPROX 4 DAYS
     Dates: start: 20101010, end: 20101014
  2. OMEPRAZOLE [Suspect]
     Indication: HIATUS HERNIA
     Dosage: APPROX 4 DAYS
     Dates: start: 20101010, end: 20101014

REACTIONS (4)
  - MALAISE [None]
  - GASTRIC POLYPS [None]
  - COLONIC POLYP [None]
  - PRODUCT SUBSTITUTION ISSUE [None]
